FAERS Safety Report 17890145 (Version 1)
Quarter: 2020Q2

REPORT INFORMATION
  Report Type: Report from Study
  Country: US (occurrence: US)
  Receive Date: 20200612
  Receipt Date: 20200612
  Transmission Date: 20200714
  Serious: Yes (Other)
  Sender: FDA-Public Use
  Company Number: US-ASTRAZENECA-2020SE67752

PATIENT
  Age: 66 Month
  Sex: Male

DRUGS (2)
  1. ASPIRIN. [Concomitant]
     Active Substance: ASPIRIN
  2. KOSELUGO [Suspect]
     Active Substance: SELUMETINIB
     Indication: NEUROFIBROMATOSIS
     Route: 048
     Dates: start: 2019

REACTIONS (4)
  - Epistaxis [Not Recovered/Not Resolved]
  - Rash [Unknown]
  - Moyamoya disease [Unknown]
  - Ingrowing nail [Unknown]

NARRATIVE: CASE EVENT DATE: 202005
